FAERS Safety Report 15182701 (Version 1)
Quarter: 2018Q3

REPORT INFORMATION
  Report Type: Spontaneous
  Country: US (occurrence: US)
  Receive Date: 20180723
  Receipt Date: 20180723
  Transmission Date: 20181010
  Serious: No
  Sender: FDA-Public Use
  Company Number: US-TEVA-2018-US-928863

PATIENT
  Sex: Female

DRUGS (3)
  1. PROVIGIL [Suspect]
     Active Substance: MODAFINIL
     Route: 065
  2. ARMODAFINIL. [Suspect]
     Active Substance: ARMODAFINIL
     Route: 065
  3. NUVIGIL [Suspect]
     Active Substance: ARMODAFINIL
     Route: 065

REACTIONS (2)
  - Premenstrual syndrome [Unknown]
  - Menopause [Unknown]
